FAERS Safety Report 25569838 (Version 1)
Quarter: 2025Q3

REPORT INFORMATION
  Report Type: Spontaneous
  Country: US (occurrence: US)
  Receive Date: 20250717
  Receipt Date: 20250717
  Transmission Date: 20251021
  Serious: Yes (Hospitalization, Other)
  Sender: APOTEX
  Company Number: US-APOTEX-2025AP009725

PATIENT
  Age: 25 Year
  Sex: Female

DRUGS (3)
  1. MODAFINIL [Suspect]
     Active Substance: MODAFINIL
     Indication: Narcolepsy
     Route: 065
  2. MODAFINIL [Suspect]
     Active Substance: MODAFINIL
     Route: 065
  3. MODAFINIL [Suspect]
     Active Substance: MODAFINIL
     Route: 065

REACTIONS (8)
  - Neuralgia [Recovering/Resolving]
  - Musculoskeletal pain [Recovering/Resolving]
  - Syncope [Unknown]
  - Pyrexia [Unknown]
  - Erythema [Recovered/Resolved]
  - Ocular hyperaemia [Recovered/Resolved]
  - Decreased appetite [Unknown]
  - Headache [Unknown]
